FAERS Safety Report 21723236 (Version 1)
Quarter: 2022Q4

REPORT INFORMATION
  Report Type: Spontaneous
  Country: US (occurrence: None)
  Receive Date: 20221212
  Receipt Date: 20221212
  Transmission Date: 20230112
  Serious: Yes (Hospitalization)
  Sender: FDA-Public Use
  Company Number: None

PATIENT
  Age: 46 Year
  Sex: Male
  Weight: 128.25 kg

DRUGS (2)
  1. PREDNISONE [Suspect]
     Active Substance: PREDNISONE
     Indication: Inflammation
     Route: 048
  2. PREDNISOLONE [Suspect]
     Active Substance: PREDNISOLONE
     Indication: Inflammation
     Route: 048

REACTIONS (8)
  - Product contamination [None]
  - Illness [None]
  - Peripheral swelling [None]
  - Joint swelling [None]
  - Peripheral swelling [None]
  - Tissue injury [None]
  - Inflammation [None]
  - Product quality issue [None]

NARRATIVE: CASE EVENT DATE: 20180801
